FAERS Safety Report 6946219-7 (Version None)
Quarter: 2010Q3

REPORT INFORMATION
  Report Type: 
  Country: None (occurrence: None)
  Receive Date: 20100824
  Receipt Date: 20100816
  Transmission Date: 20110219
  Serious: Yes (Other)
  Sender: FDA-Public Use
  Company Number: 2010MA001815

PATIENT
  Age: 46 Year
  Sex: Female

DRUGS (3)
  1. SERTRALINE HYDROCHLORIDE [Suspect]
     Indication: DEPRESSION
     Dosage: 100 MG;PO
     Route: 048
     Dates: start: 20100305, end: 20100804
  2. CITALOPRAM HYDROBROMIDE [Concomitant]
  3. PREV MEDS [Concomitant]

REACTIONS (1)
  - COLITIS COLLAGENOUS [None]
